FAERS Safety Report 6434843-X (Version None)
Quarter: 2009Q4

REPORT INFORMATION
  Report Type: 
  Country: None (occurrence: None)
  Receive Date: 20091110
  Receipt Date: 20091102
  Transmission Date: 20100525
  Serious: Yes (Hospitalization)
  Sender: FDA-Public Use
  Company Number: US-JNJFOC-20091101306

PATIENT
  Sex: Male
  Weight: 76.2 kg

DRUGS (6)
  1. DURAGESIC-100 [Suspect]
     Indication: PAIN IN EXTREMITY
     Dosage: 2 100 UG/HR PATCHES
     Route: 062
  2. TOPAMAX [Concomitant]
     Indication: CONVULSION
     Route: 048
  3. IMITREX [Concomitant]
     Indication: MIGRAINE
     Route: 048
  4. NEXIUM [Concomitant]
     Indication: GASTROOESOPHAGEAL REFLUX DISEASE
     Route: 048
  5. CLONIDINE [Concomitant]
     Indication: HYPERTENSION
     Route: 048
  6. VIMPAT [Concomitant]
     Indication: CONVULSION
     Route: 048

REACTIONS (5)
  - BACTERIAL TEST [None]
  - BLOOD CHOLESTEROL INCREASED [None]
  - CONVULSION [None]
  - DEHYDRATION [None]
  - LOSS OF CONSCIOUSNESS [None]
